FAERS Safety Report 9638101 (Version 3)
Quarter: 2014Q2

REPORT INFORMATION
  Report Type: Spontaneous
  Country: US (occurrence: US)
  Receive Date: 20131022
  Receipt Date: 20140508
  Transmission Date: 20141212
  Serious: Yes (Death)
  Sender: FDA-Public Use
  Company Number: US-PFIZER INC-2013298152

PATIENT
  Age: 69 Year
  Sex: Male

DRUGS (1)
  1. XALKORI [Suspect]
     Indication: RENAL CANCER
     Dosage: 200 MG, 2X/DAY
     Dates: start: 20131015

REACTIONS (3)
  - Off label use [Fatal]
  - Cardiac arrest [Fatal]
  - Oedema peripheral [Unknown]
